FAERS Safety Report 9054866 (Version 3)
Quarter: 2013Q4

REPORT INFORMATION
  Report Type: Spontaneous
  Country: JP (occurrence: JP)
  Receive Date: 20130208
  Receipt Date: 20131219
  Transmission Date: 20140711
  Serious: Yes (Hospitalization, Other)
  Sender: FDA-Public Use
  Company Number: JP-009507513-1302JPN003141

PATIENT
  Age: 42 Year
  Sex: Female

DRUGS (4)
  1. ESLAX INTRAVENOUS 25MG/2.5ML [Suspect]
     Dosage: DAILY DOSE UNKNOWN
     Route: 042
     Dates: start: 201301, end: 201301
  2. THERAPY UNSPECIFIED [Suspect]
     Dosage: DAILY DOAGE UNKNOWN
     Route: 065
  3. SEVOFLURANE [Concomitant]
     Dosage: DAILY DOSE UNKNOWN
     Route: 055
  4. PROPOFOL [Concomitant]
     Dosage: DAILY DOSE UNKNOWN
     Route: 042

REACTIONS (1)
  - Rhabdomyolysis [Unknown]
